FAERS Safety Report 6311574-8 (Version None)
Quarter: 2009Q3

REPORT INFORMATION
  Report Type: 
  Country: None (occurrence: None)
  Receive Date: 20090817
  Receipt Date: 20090807
  Transmission Date: 20100115
  Serious: Yes (Death, Hospitalization, Congenital Anomaly)
  Sender: FDA-Public Use
  Company Number: A0679468A

PATIENT
  Sex: Male

DRUGS (6)
  1. PAROXETINE HCL [Suspect]
     Indication: DEPRESSION
     Dosage: 20MG PER DAY
  2. VITAMIN TAB [Concomitant]
  3. PULMICORT-100 [Concomitant]
  4. PREDNISONE [Concomitant]
  5. ALBUTEROL [Concomitant]
  6. ACETAMINOPHEN [Concomitant]

REACTIONS (6)
  - ATRIAL SEPTAL DEFECT [None]
  - CARDIAC FAILURE CONGESTIVE [None]
  - DRUG EXPOSURE DURING PREGNANCY [None]
  - GASTROINTESTINAL DISORDER CONGENITAL [None]
  - PULMONARY HYPERTENSION [None]
  - VENTRICULAR SEPTAL DEFECT [None]
